FAERS Safety Report 9731352 (Version 1)
Quarter: 2013Q4

REPORT INFORMATION
  Report Type: Spontaneous
  Country: GB (occurrence: GB)
  Receive Date: 20131203
  Receipt Date: 20131203
  Transmission Date: 20140711
  Serious: Yes (Other)
  Sender: FDA-Public Use
  Company Number: GB-PFIZER INC-2013343458

PATIENT
  Age: 61 Year
  Sex: Female
  Weight: 76.2 kg

DRUGS (4)
  1. RAMIPRIL [Suspect]
     Indication: HYPERTENSION
     Dosage: 10 MG, UNK
     Route: 048
     Dates: start: 201207
  2. AMLODIPINE BESILATE [Concomitant]
     Dosage: 10 MG, UNK
     Route: 065
  3. ASPIRIN [Concomitant]
     Dosage: 75 MG, UNK
     Route: 065
  4. DIPYRIDAMOLE [Concomitant]
     Dosage: UNK
     Route: 065

REACTIONS (4)
  - Activities of daily living impaired [Not Recovered/Not Resolved]
  - Abdominal pain [Not Recovered/Not Resolved]
  - Cough [Not Recovered/Not Resolved]
  - Pain [Not Recovered/Not Resolved]
